FAERS Safety Report 14884085 (Version 1)
Quarter: 2018Q2

REPORT INFORMATION
  Report Type: Spontaneous
  Country: NL (occurrence: NL)
  Receive Date: 20180511
  Receipt Date: 20180511
  Transmission Date: 20180711
  Serious: Yes (Other)
  Sender: FDA-Public Use
  Company Number: NL-ENDO PHARMACEUTICALS INC-2018-036091

PATIENT
  Age: 22 Year
  Sex: Female

DRUGS (2)
  1. AVEED [Suspect]
     Active Substance: TESTOSTERONE UNDECANOATE
     Indication: TRANSGENDER HORMONAL THERAPY
     Dosage: UNK UNKNOWN, EVERY 3 MONTHS
     Route: 065
     Dates: start: 2017
  2. AVEED [Suspect]
     Active Substance: TESTOSTERONE UNDECANOATE
     Dosage: UNK UNKNOWN, MOST RECENT DOSE
     Route: 065
     Dates: start: 20180212, end: 20180212

REACTIONS (3)
  - Abdominal pain [Unknown]
  - Off label use [Unknown]
  - Vaginal haemorrhage [Unknown]

NARRATIVE: CASE EVENT DATE: 2017
